FAERS Safety Report 7535964-0 (Version None)
Quarter: 2011Q2

REPORT INFORMATION
  Report Type: 
  Country: None (occurrence: None)
  Receive Date: 20110607
  Receipt Date: 20110607
  Transmission Date: 20111010
  Serious: Yes (Life-Threatening)
  Sender: FDA-Public Use
  Company Number: None

PATIENT
  Age: 37 Year
  Sex: Female

DRUGS (5)
  1. ABATACEPT 250MG/VIAL [Suspect]
     Indication: RHEUMATOID ARTHRITIS
     Dosage: 750MG ONE TIME IV
     Route: 042
     Dates: start: 20110406, end: 20110406
  2. HYGROTEN [Concomitant]
  3. METHOTREXATE [Concomitant]
  4. METOPROLOL [Concomitant]
  5. IBUPROFEN [Concomitant]

REACTIONS (12)
  - PRURITUS [None]
  - CHILLS [None]
  - HYPOAESTHESIA [None]
  - FEELING ABNORMAL [None]
  - CHEST PAIN [None]
  - BLOOD PRESSURE INCREASED [None]
  - INFUSION RELATED REACTION [None]
  - VISION BLURRED [None]
  - DYSPNOEA [None]
  - DIZZINESS [None]
  - PARAESTHESIA [None]
  - HEADACHE [None]
